FAERS Safety Report 21835977 (Version 1)
Quarter: 2023Q1

REPORT INFORMATION
  Report Type: Report from Study
  Country: US (occurrence: US)
  Receive Date: 20230109
  Receipt Date: 20230109
  Transmission Date: 20230418
  Serious: No
  Sender: FDA-Public Use
  Company Number: US-ABBVIE-4231462

PATIENT
  Age: 17 Year
  Sex: Male

DRUGS (1)
  1. HUMIRA [Suspect]
     Active Substance: ADALIMUMAB
     Indication: Hidradenitis
     Dosage: CITRATE FREE;?FORM STRENGTH: 40 MG
     Route: 058

REACTIONS (3)
  - Cellulitis [Recovering/Resolving]
  - Hyperhidrosis [Unknown]
  - Stress [Unknown]

NARRATIVE: CASE EVENT DATE: 20221130
